FAERS Safety Report 4641157-7 (Version None)
Quarter: 2005Q2

REPORT INFORMATION
  Report Type: 
  Country: None (occurrence: None)
  Receive Date: 20050421
  Receipt Date: 20050411
  Transmission Date: 20051028
  Serious: Yes (Hospitalization)
  Sender: FDA-Public Use
  Company Number: US-BRISTOL-MYERS SQUIBB COMPANY-12929428

PATIENT
  Age: 45 Year
  Sex: Female

DRUGS (1)
  1. SERZONE [Suspect]
     Route: 048
     Dates: start: 19950301, end: 19960401

REACTIONS (2)
  - BLOOD BILIRUBIN INCREASED [None]
  - CHOLELITHIASIS [None]
